FAERS Safety Report 6932976-2 (Version None)
Quarter: 2010Q3

REPORT INFORMATION
  Report Type: 
  Country: None (occurrence: None)
  Receive Date: 20100817
  Receipt Date: 20100802
  Transmission Date: 20110219
  Serious: Yes (Other)
  Sender: FDA-Public Use
  Company Number: 2010-0679

PATIENT
  Age: 11 Year
  Sex: Male
  Weight: 25 kg

DRUGS (6)
  1. INCRELEX [Suspect]
     Indication: INSULIN-LIKE GROWTH FACTOR DECREASED
     Dosage: MAXIMUM DOSE RECEIVED = 2.7 MG BID (2.7 MG), SUBCUTANEOUS
     Route: 058
     Dates: start: 20050101, end: 20091201
  2. ZANTAC (RANITDINE HYDROCHLORIDE) [Concomitant]
  3. MILK OF MAGNESIA (MAGNESIIM HYDROXIDE) [Concomitant]
  4. MIRALAX [Concomitant]
  5. EX-LAX (SENNA ALEXANDRINA) [Concomitant]
  6. DIAMOX [Concomitant]

REACTIONS (4)
  - BENIGN INTRACRANIAL HYPERTENSION [None]
  - CONSTIPATION [None]
  - DECREASED APPETITE [None]
  - NEUTROPHIL COUNT DECREASED [None]
